FAERS Safety Report 5979851-8 (Version None)
Quarter: 2008Q4

REPORT INFORMATION
  Report Type: 
  Country: None (occurrence: None)
  Receive Date: 20081126
  Receipt Date: 20081112
  Transmission Date: 20090506
  Serious: Yes (Other)
  Sender: FDA-Public Use
  Company Number: 1000000381

PATIENT
  Age: 51 Year
  Sex: Female
  Weight: 50 kg

DRUGS (4)
  1. CITALOPRAM HYDROBROMIDE [Suspect]
     Indication: BINGE EATING
     Dosage: 10-20 MG (1 IN 1 D), ORAL
     Route: 048
     Dates: start: 20060101
  2. CITALOPRAM HYDROBROMIDE [Suspect]
     Indication: DEPRESSED MOOD
     Dosage: 10-20 MG (1 IN 1 D), ORAL
     Route: 048
     Dates: start: 20060101
  3. UTROGEST (GEL) [Concomitant]
  4. GYNOKADIN [Concomitant]

REACTIONS (1)
  - MYELODYSPLASTIC SYNDROME [None]
